FAERS Safety Report 5589571-X (Version None)
Quarter: 2007Q4

REPORT INFORMATION
  Report Type: 
  Country: None (occurrence: None)
  Receive Date: 20071210
  Receipt Date: 20070912
  Transmission Date: 20080405
  Serious: Yes (Death)
  Sender: FDA-Public Use
  Company Number: 516669

PATIENT
  Age: 46 Year
  Sex: Female

DRUGS (6)
  1. VALIUM [Suspect]
     Indication: PAIN
     Dates: end: 20021022
  2. PERCOCET (OXYCODONE/PARACETAMOL) [Suspect]
     Indication: PAIN
     Dates: end: 20021022
  3. OXYCONTIN [Suspect]
     Indication: PAIN
     Dates: end: 20021022
  4. SOMA [Suspect]
     Indication: PAIN
     Dates: end: 20021022
  5. XANAX [Suspect]
     Indication: PAIN
     Dates: end: 20021022
  6. SUSPECTED UNSPECIFIED DRUG (GENERIC UNKNOWN) [Suspect]
     Indication: DRUG USE FOR UNKNOWN INDICATION
     Dates: end: 20021022

REACTIONS (2)
  - LOSS OF CONSCIOUSNESS [None]
  - OVERDOSE [None]
